FAERS Safety Report 8018098-0 (Version None)
Quarter: 2012Q1

REPORT INFORMATION
  Report Type: 
  Country: None (occurrence: None)
  Receive Date: 20120103
  Receipt Date: 20111220
  Transmission Date: 20120608
  Serious: Yes (Hospitalization)
  Sender: FDA-Public Use
  Company Number: BR-SANOFI-AVENTIS-2011SA083757

PATIENT
  Age: 63 Year
  Sex: Female
  Weight: 70 kg

DRUGS (7)
  1. CLIKSTAR [Concomitant]
     Indication: DEVICE THERAPY
     Dates: start: 20090101
  2. AUTOPEN 24 [Concomitant]
     Indication: DEVICE THERAPY
     Dates: start: 20090101
  3. ALL OTHER THERAPEUTIC PRODUCTS [Concomitant]
     Indication: TYPE 2 DIABETES MELLITUS
     Route: 048
     Dates: start: 20110801
  4. AZATHIOPRINE [Concomitant]
     Indication: AUTOIMMUNE HEPATITIS
     Route: 048
     Dates: start: 20010101
  5. APIDRA [Suspect]
     Indication: TYPE 2 DIABETES MELLITUS
     Dosage: DOSE/FREQUENCY: 36 IU IN THE MORNING,BEFORE LUNCH AND 30 IU AT NIGHT.
     Route: 058
     Dates: start: 20090101
  6. LANTUS [Suspect]
     Indication: TYPE 2 DIABETES MELLITUS
     Route: 058
     Dates: start: 20090101
  7. DEFLAZACORT [Concomitant]
     Indication: HEPATITIS
     Route: 048
     Dates: start: 20010101

REACTIONS (3)
  - YELLOW SKIN [None]
  - FLUID RETENTION [None]
  - BLOOD GLUCOSE INCREASED [None]
